FAERS Safety Report 24211759 (Version 1)
Quarter: 2024Q3

REPORT INFORMATION
  Report Type: Spontaneous
  Country: US (occurrence: US)
  Receive Date: 20240814
  Receipt Date: 20240814
  Transmission Date: 20241017
  Serious: No
  Sender: BAUSCH AND LOMB
  Company Number: US-BAUSCH-BL-2024-012149

PATIENT
  Sex: Female

DRUGS (3)
  1. WELLBUTRIN XL [Suspect]
     Active Substance: BUPROPION HYDROCHLORIDE
     Indication: Major depression
     Route: 065
  2. WELLBUTRIN XL [Suspect]
     Active Substance: BUPROPION HYDROCHLORIDE
     Dosage: INCREASED DOSAGE TO 300 MG
     Route: 065
     Dates: start: 2024, end: 2024
  3. WELLBUTRIN XL [Suspect]
     Active Substance: BUPROPION HYDROCHLORIDE
     Route: 065
     Dates: start: 2024

REACTIONS (9)
  - Depression [Unknown]
  - Feeling hot [Unknown]
  - Lethargy [Unknown]
  - Frustration tolerance decreased [Unknown]
  - Feeling abnormal [Unknown]
  - Loss of personal independence in daily activities [Unknown]
  - Muscular weakness [Unknown]
  - Hyperhidrosis [Unknown]
  - Nausea [Unknown]

NARRATIVE: CASE EVENT DATE: 20240101
